FAERS Safety Report 4827011-6 (Version None)
Quarter: 2005Q4

REPORT INFORMATION
  Report Type: 
  Country: None (occurrence: None)
  Receive Date: 20051014
  Receipt Date: 20050628
  Transmission Date: 20060501
  Serious: No
  Sender: FDA-Public Use
  Company Number: 2005SP000570

PATIENT
  Age: 78 Year
  Sex: Female
  Weight: 63.5036 kg

DRUGS (23)
  1. LUNESTA [Suspect]
     Indication: INSOMNIA
     Dosage: 1 MG; HS; ORAL
     Route: 048
     Dates: start: 20050502, end: 20050503
  2. AMBIEN [Concomitant]
  3. XANAX [Concomitant]
  4. PROPAFENONE HYDROCHLORIDE [Concomitant]
  5. ... [Concomitant]
  6. HYDROCHLOROTHIAZIDE [Concomitant]
  7. VALSARTAN [Concomitant]
  8. ACIPHEX [Concomitant]
  9. ASCORBIC ACID [Concomitant]
  10. MULTIVITAMIN [Concomitant]
  11. FOLIC ACID [Concomitant]
  12. CALCIUM GLUCONATE [Concomitant]
  13. GLUCOSAMINE HYDROCHLORIDE [Concomitant]
  14. LUTEIN [Concomitant]
  15. ZETIA [Concomitant]
  16. LESCOL [Concomitant]
  17. COUMADIN [Concomitant]
  18. DIGOXIN [Concomitant]
  19. AMLODIPINE [Concomitant]
  20. TYLENOL ARTHRITIS [Concomitant]
  21. FOSAMAX [Concomitant]
  22. LEVSIN [Concomitant]
  23. AMLODIPINE BESYLATE [Concomitant]

REACTIONS (1)
  - PARADOXICAL DRUG REACTION [None]
